FAERS Safety Report 21341554 (Version 6)
Quarter: 2023Q1

REPORT INFORMATION
  Report Type: Report from Study
  Country: BR (occurrence: BR)
  Receive Date: 20220916
  Receipt Date: 20230320
  Transmission Date: 20230418
  Serious: Yes (Hospitalization)
  Sender: FDA-Public Use
  Company Number: BR-NOVARTISPH-NVSC2022BR180552

PATIENT
  Sex: Female

DRUGS (7)
  1. COSENTYX [Suspect]
     Active Substance: SECUKINUMAB
     Indication: Psoriasis
     Dosage: 300 MG, QW (150MG TWO SYRINGES) ( TWO SYRINGES ON WEEKS 0, 1, 2, 3 AND 4 AND THEN EVERY 30 DAYS)
     Route: 065
  2. COSENTYX [Suspect]
     Active Substance: SECUKINUMAB
     Dosage: UNK UNK, QW (INDUCTION DOSE) (2 PENS)
     Route: 065
     Dates: start: 20220805
  3. COSENTYX [Suspect]
     Active Substance: SECUKINUMAB
     Dosage: UNK
     Route: 065
     Dates: start: 20220919
  4. COSENTYX [Suspect]
     Active Substance: SECUKINUMAB
     Dosage: UNK
     Route: 065
     Dates: start: 20221017
  5. COSENTYX [Suspect]
     Active Substance: SECUKINUMAB
     Dosage: UNK
     Route: 065
  6. COSENTYX [Suspect]
     Active Substance: SECUKINUMAB
     Dosage: 2 DOSAGE FORM, QMO (AMPOULE)
     Route: 065
  7. COSENTYX [Suspect]
     Active Substance: SECUKINUMAB
     Dosage: 2 DOSAGE FORM, QMO (AMPOULE)
     Route: 065

REACTIONS (18)
  - Pneumonia [Recovered/Resolved]
  - Pneumonia [Unknown]
  - Pruritus [Recovering/Resolving]
  - Feeling abnormal [Unknown]
  - Asthenia [Unknown]
  - Skin exfoliation [Recovering/Resolving]
  - Dizziness [Unknown]
  - Muscle disorder [Unknown]
  - Somnolence [Unknown]
  - Dry skin [Unknown]
  - Condition aggravated [Unknown]
  - Hyperhidrosis [Unknown]
  - Skin atrophy [Unknown]
  - Dandruff [Recovering/Resolving]
  - Alopecia [Recovering/Resolving]
  - Dermatitis [Recovering/Resolving]
  - Product prescribing error [Not Recovered/Not Resolved]
  - Therapeutic product effect incomplete [Recovering/Resolving]
